FAERS Safety Report 20016892 (Version 1)
Quarter: 2021Q4

REPORT INFORMATION
  Report Type: Spontaneous
  Country: US (occurrence: None)
  Receive Date: 20211105
  Receipt Date: 20211105
  Transmission Date: 20220303
  Serious: Yes (Death)
  Sender: FDA-Public Use
  Company Number: None

PATIENT
  Age: 72 Year
  Sex: Female

DRUGS (1)
  1. TECARTUS [Suspect]
     Active Substance: BREXUCABTAGENE AUTOLEUCEL
     Indication: Mantle cell lymphoma
     Dosage: OTHER FREQUENCY : ONCE;?
     Dates: start: 20210907, end: 20210907

REACTIONS (10)
  - Neurotoxicity [None]
  - Mental status changes [None]
  - Attention deficit hyperactivity disorder [None]
  - Depressed level of consciousness [None]
  - Blood pressure increased [None]
  - Tachycardia [None]
  - Cerebrovascular accident [None]
  - Pupils unequal [None]
  - Seizure [None]
  - Disease progression [None]

NARRATIVE: CASE EVENT DATE: 20210916
